FAERS Safety Report 13236873 (Version 1)
Quarter: 2017Q1

REPORT INFORMATION
  Report Type: Report from Study
  Country: US (occurrence: US)
  Receive Date: 20170215
  Receipt Date: 20170215
  Transmission Date: 20170428
  Serious: Yes (Other)
  Sender: FDA-Public Use
  Company Number: US-BAYER-2016-205685

PATIENT
  Age: 65 Year
  Sex: Male

DRUGS (4)
  1. NEXAVAR [Suspect]
     Active Substance: SORAFENIB
     Indication: HEPATOCELLULAR CARCINOMA
     Dosage: 200 MG DAILY
     Route: 048
  2. NEXAVAR [Suspect]
     Active Substance: SORAFENIB
     Indication: HEPATOCELLULAR CARCINOMA
     Dosage: 400 MG, BID
     Route: 048
     Dates: start: 20160929, end: 2016
  3. NEXAVAR [Suspect]
     Active Substance: SORAFENIB
     Indication: HEPATOCELLULAR CARCINOMA
     Dosage: 200 MG, QD
     Route: 048
     Dates: start: 20161007, end: 201610
  4. NEXAVAR [Suspect]
     Active Substance: SORAFENIB
     Indication: HEPATOCELLULAR CARCINOMA
     Dosage: 400 MG, QD
     Route: 048
     Dates: start: 20161014, end: 20161018

REACTIONS (8)
  - Insomnia [Recovering/Resolving]
  - Pruritus [Recovered/Resolved]
  - Medical procedure [None]
  - Erythema [Recovering/Resolving]
  - Constipation [Recovered/Resolved]
  - Blood test abnormal [Not Recovered/Not Resolved]
  - Blood pressure increased [Recovering/Resolving]
  - Product use issue [None]

NARRATIVE: CASE EVENT DATE: 201610
